APPROVED DRUG PRODUCT: ERYPAR
Active Ingredient: ERYTHROMYCIN STEARATE
Strength: EQ 250MG BASE
Dosage Form/Route: TABLET;ORAL
Application: A062032 | Product #001
Applicant: PARKE DAVIS DIV WARNER LAMBERT CO
Approved: Approved Prior to Jan 1, 1982 | RLD: No | RS: No | Type: DISCN